FAERS Safety Report 9109853 (Version 1)
Quarter: 2013Q1

REPORT INFORMATION
  Report Type: Spontaneous
  Country: US (occurrence: US)
  Receive Date: 20130222
  Receipt Date: 20130222
  Transmission Date: 20140127
  Serious: Yes (Other)
  Sender: FDA-Public Use
  Company Number: US-JNJFOC-20130208986

PATIENT
  Age: 43 Year
  Sex: Male

DRUGS (1)
  1. USTEKINUMAB [Suspect]
     Indication: PSORIASIS
     Dosage: AT WEEK 0 AND 4
     Route: 058

REACTIONS (1)
  - Psoriatic arthropathy [Recovered/Resolved]
